FAERS Safety Report 23952236 (Version 1)
Quarter: 2024Q2

REPORT INFORMATION
  Report Type: Spontaneous
  Country: DK (occurrence: None)
  Receive Date: 20240607
  Receipt Date: 20240607
  Transmission Date: 20240716
  Serious: Yes (Death, Hospitalization, Other)
  Sender: FDA-Public Use
  Company Number: 2024A131911

PATIENT
  Age: 74 Year
  Sex: Female

DRUGS (1)
  1. IMFINZI [Suspect]
     Active Substance: DURVALUMAB
     Indication: Lung neoplasm malignant
     Dosage: UNKNOWN DOSE ADMINISTERED ONCE IN TOTAL.
     Route: 040
     Dates: start: 20240512, end: 20240512

REACTIONS (5)
  - Respiratory failure [Fatal]
  - Pneumonitis [Fatal]
  - Nephritis [Fatal]
  - Hepatitis [Fatal]
  - Delirium [Unknown]

NARRATIVE: CASE EVENT DATE: 20240101
